FAERS Safety Report 14799469 (Version 1)
Quarter: 2018Q2

REPORT INFORMATION
  Report Type: Spontaneous
  Country: US (occurrence: US)
  Receive Date: 20180424
  Receipt Date: 20180424
  Transmission Date: 20180711
  Serious: No
  Sender: FDA-Public Use
  Company Number: US-SHIRE-US201815367

PATIENT
  Sex: Female

DRUGS (1)
  1. FIRAZYR [Suspect]
     Active Substance: ICATIBANT ACETATE
     Indication: HEREDITARY ANGIOEDEMA
     Dosage: 3 MG, 1X/2WKS
     Route: 065
     Dates: start: 201707, end: 201712

REACTIONS (3)
  - Hereditary angioedema [Unknown]
  - Inappropriate schedule of drug administration [Unknown]
  - Off label use [Unknown]
